FAERS Safety Report 6275431-8 (Version None)
Quarter: 2009Q3

REPORT INFORMATION
  Report Type: 
  Country: None (occurrence: None)
  Receive Date: 20090721
  Receipt Date: 20090715
  Transmission Date: 20100115
  Serious: Yes (Other)
  Sender: FDA-Public Use
  Company Number: DE-JNJFOC-20090705246

PATIENT
  Age: 87 Year
  Sex: Female
  Weight: 73 kg

DRUGS (1)
  1. DOLORMIN EXTRA [Suspect]
     Indication: BACK PAIN
     Dosage: 8,000 - 12,000MG PER WEEK
     Route: 048

REACTIONS (2)
  - GASTRITIS [None]
  - INTENTIONAL DRUG MISUSE [None]
